FAERS Safety Report 6836815-X (Version None)
Quarter: 2010Q3

REPORT INFORMATION
  Report Type: 
  Country: None (occurrence: None)
  Receive Date: 20100713
  Receipt Date: 20070501
  Transmission Date: 20110219
  Serious: No
  Sender: FDA-Public Use
  Company Number: US-PFIZER INC-2007036012

PATIENT
  Sex: Male
  Weight: 102.51 kg

DRUGS (12)
  1. CHANTIX [Suspect]
     Indication: SMOKING CESSATION THERAPY
     Dates: start: 20070401
  2. STARLIX [Concomitant]
  3. ACTOS [Concomitant]
  4. MONOPRIL [Concomitant]
  5. AVAPRO [Concomitant]
  6. ATENOLOL [Concomitant]
  7. LIPITOR [Concomitant]
  8. LASIX [Concomitant]
  9. PRILOSEC [Concomitant]
  10. ADVAIR DISKUS 100/50 [Concomitant]
  11. COMBIVENT [Concomitant]
  12. FLONASE [Concomitant]

REACTIONS (3)
  - ABNORMAL DREAMS [None]
  - MEMORY IMPAIRMENT [None]
  - NAUSEA [None]
